FAERS Safety Report 5379227-0 (Version None)
Quarter: 2007Q3

REPORT INFORMATION
  Report Type: 
  Country: None (occurrence: None)
  Receive Date: 20070705
  Receipt Date: 20070625
  Transmission Date: 20080115
  Serious: Yes (Other)
  Sender: FDA-Public Use
  Company Number: US-PFIZER INC-2007052887

PATIENT
  Sex: Male
  Weight: 113.4 kg

DRUGS (3)
  1. CHANTIX [Suspect]
     Indication: SMOKING CESSATION THERAPY
  2. CORTISONE ACETATE [Suspect]
     Indication: MUSCULOSKELETAL PAIN
  3. CORTISONE ACETATE [Suspect]
     Indication: INFLAMMATION

REACTIONS (6)
  - DEPRESSION [None]
  - INFLAMMATION [None]
  - MUSCULOSKELETAL PAIN [None]
  - ROTATOR CUFF SYNDROME [None]
  - SKELETAL INJURY [None]
  - SLEEP DISORDER [None]
